FAERS Safety Report 8852650 (Version 1)
Quarter: 2012Q4

REPORT INFORMATION
  Report Type: 
  Country: US (occurrence: US)
  Receive Date: 20121022
  Receipt Date: 20121022
  Transmission Date: 20130627
  Serious: Yes (Other)
  Sender: FDA-Public Use
  Company Number: US-PFIZER INC-2012259920

PATIENT
  Age: 85 Year
  Sex: Female
  Weight: 68.03 kg

DRUGS (8)
  1. TOVIAZ [Suspect]
     Indication: HYPERTONIC BLADDER
     Dosage: 4 mg, 1x/day
     Route: 048
     Dates: start: 201202, end: 20121001
  2. TOVIAZ [Suspect]
     Dosage: 8 mg, 1x/day
     Route: 048
     Dates: start: 20121001
  3. TOVIAZ [Suspect]
     Dosage: UNK
  4. NORVASC [Concomitant]
     Indication: HYPERTENSION
     Dosage: 10 mg, UNK
  5. ATENOLOL [Concomitant]
     Indication: HYPERTENSION
     Dosage: 50 mg, UNK
  6. CRESTOR [Concomitant]
     Indication: BLOOD CHOLESTEROL INCREASED
     Dosage: UNK
  7. SYNTHROID [Concomitant]
     Indication: THYROID DISORDER
     Dosage: UNK
  8. PAXIL [Concomitant]
     Indication: DEPRESSION
     Dosage: UNK

REACTIONS (1)
  - Swollen tongue [Not Recovered/Not Resolved]
